FAERS Safety Report 19377850 (Version 1)
Quarter: 2021Q2

REPORT INFORMATION
  Report Type: Spontaneous
  Country: US (occurrence: US)
  Receive Date: 20210604
  Receipt Date: 20210604
  Transmission Date: 20210717
  Serious: No
  Sender: FDA-Public Use
  Company Number: US-BRAINTREE LABORATORIES, INC.-2021BTE00121

PATIENT
  Age: 50 Year
  Sex: Female

DRUGS (14)
  1. AZATHIOPRINE. [Concomitant]
     Active Substance: AZATHIOPRINE
  2. BIOTIN [Concomitant]
     Active Substance: BIOTIN
  3. EPIPEN [Concomitant]
     Active Substance: EPINEPHRINE
     Dosage: UNK, AS NEEDED
  4. SUTAB [Suspect]
     Active Substance: MAGNESIUM SULFATE\POTASSIUM CHLORIDE\SODIUM SULFATE
     Indication: COLONOSCOPY
     Dosage: 12 TABLETS, 2X
     Route: 048
     Dates: start: 20210223, end: 20210224
  5. LOSARTAN. [Concomitant]
     Active Substance: LOSARTAN
  6. PRO AIR INHALER [Concomitant]
  7. AMITIZA [Concomitant]
     Active Substance: LUBIPROSTONE
  8. NALTREXONE [Concomitant]
     Active Substance: NALTREXONE
  9. VITAMIN C [Concomitant]
     Active Substance: ASCORBIC ACID
  10. MULTIVITAMIN [Concomitant]
     Active Substance: VITAMINS
  11. PREGABALIN. [Concomitant]
     Active Substance: PREGABALIN
  12. SYMBICORT [Concomitant]
     Active Substance: BUDESONIDE\FORMOTEROL FUMARATE DIHYDRATE
  13. OMEPRAZOLE. [Concomitant]
     Active Substance: OMEPRAZOLE
  14. PREDNISONE. [Concomitant]
     Active Substance: PREDNISONE

REACTIONS (3)
  - Vomiting [Recovered/Resolved]
  - Abdominal distension [Not Recovered/Not Resolved]
  - Pain [Not Recovered/Not Resolved]

NARRATIVE: CASE EVENT DATE: 20210223
